FAERS Safety Report 26051315 (Version 3)
Quarter: 2025Q4

REPORT INFORMATION
  Report Type: Spontaneous
  Country: US (occurrence: US)
  Receive Date: 20251117
  Receipt Date: 20251230
  Transmission Date: 20260118
  Serious: No
  Sender: TOLMAR
  Company Number: US-Tolmar-TLM-2025-08339

PATIENT

DRUGS (3)
  1. ELIGARD [Suspect]
     Active Substance: LEUPROLIDE ACETATE
     Indication: Product used for unknown indication
     Dosage: LOT/BATCH NO: 15248AUS; 15189BUS; UNK?LOT EXPIRATION DATE: UNK; 31-JUL-2026; UNK?NDC -62935-227-10?D
     Route: 065
  2. ELIGARD [Suspect]
     Active Substance: LEUPROLIDE ACETATE
     Dosage: REPLACEMENT DOSE GIVEN
  3. DEVICE [Suspect]
     Active Substance: DEVICE
     Indication: Product used for unknown indication
     Dosage: LOT/BATCH NO: 15248AUS; 15189BUS; UNK?LOT EXPIRATION DATE: UNK; 31-JUL-2026; UNK?NDC -62935-227-10

REACTIONS (4)
  - Wrong technique in product usage process [Unknown]
  - Intercepted product preparation error [Unknown]
  - Syringe issue [Unknown]
  - Device malfunction [Unknown]
